FAERS Safety Report 4673669-4 (Version None)
Quarter: 2005Q2

REPORT INFORMATION
  Report Type: 
  Country: None (occurrence: None)
  Receive Date: 20050523
  Receipt Date: 20050407
  Transmission Date: 20051028
  Serious: No
  Sender: FDA-Public Use
  Company Number: MED000074

PATIENT
  Sex: Female

DRUGS (1)
  1. LACTATED RINGER'S [Suspect]

REACTIONS (3)
  - INFUSION SITE ERYTHEMA [None]
  - INFUSION SITE PRURITUS [None]
  - INJECTION SITE URTICARIA [None]
